FAERS Safety Report 4572623-0 (Version None)
Quarter: 2005Q1

REPORT INFORMATION
  Report Type: 
  Country: None (occurrence: None)
  Receive Date: 20050208
  Receipt Date: 20041025
  Transmission Date: 20050727
  Serious: No
  Sender: FDA-Public Use
  Company Number: US-GLAXOSMITHKLINE-A0531443A

PATIENT
  Sex: Male

DRUGS (2)
  1. PAXIL CR [Suspect]
     Indication: BLOOD PRESSURE
     Route: 048
  2. PAXIL [Suspect]
     Indication: BLOOD PRESSURE

REACTIONS (2)
  - ANOREXIA [None]
  - YAWNING [None]
